FAERS Safety Report 13989824 (Version 1)
Quarter: 2017Q3

REPORT INFORMATION
  Report Type: Spontaneous
  Country: US (occurrence: US)
  Receive Date: 20170920
  Receipt Date: 20170920
  Transmission Date: 20171128
  Serious: No
  Sender: FDA-Public Use
  Company Number: US-TEVA-735999ACC

PATIENT
  Age: 64 Year
  Sex: Female

DRUGS (3)
  1. CYCLOBENZAPRINE. [Suspect]
     Active Substance: CYCLOBENZAPRINE
     Route: 065
  2. DULOXETINE. [Concomitant]
     Active Substance: DULOXETINE
  3. TIZANIDINE. [Suspect]
     Active Substance: TIZANIDINE
     Route: 065

REACTIONS (5)
  - Dysarthria [Recovered/Resolved]
  - Apraxia [Recovered/Resolved]
  - Drug hypersensitivity [Unknown]
  - Nervousness [Recovered/Resolved]
  - Tremor [Recovered/Resolved]

NARRATIVE: CASE EVENT DATE: 20131015
